FAERS Safety Report 7611454-1 (Version None)
Quarter: 2011Q3

REPORT INFORMATION
  Report Type: 
  Country: None (occurrence: None)
  Receive Date: 20110715
  Receipt Date: 20110708
  Transmission Date: 20111222
  Serious: Yes (Life-Threatening, Hospitalization)
  Sender: FDA-Public Use
  Company Number: US-ROCHE-789140

PATIENT
  Age: 74 Year
  Sex: Female
  Weight: 61.2 kg

DRUGS (6)
  1. ZOFRAN [Suspect]
     Route: 065
  2. LORAZEPAM [Concomitant]
  3. PACLITAXEL [Suspect]
     Dosage: INTRAVENOUS OVER 3 HRS ON DAY 1229.5 MG GIVEN ON 25 MAY 2011
     Route: 050
     Dates: start: 20110330
  4. PACLITAXEL [Suspect]
     Dosage: INTRAPERITONEAL ON DAY 8, TOTAL DOSE 331.5 MG, LAST DOSE ADMINSTARTION: 01 JUNE 2011
     Route: 050
  5. CISPLATIN [Suspect]
     Dosage: ON DAY 2, TOTAL DOSE: 127.5, LAST ADMINSTRATION 26 MAY 2011.
     Route: 033
  6. BEVACIZUMAB [Suspect]
     Dosage: TOTAL DOSE: 990 MG, OVER 30-90 MIN, LAST DOSE ADMINSTARTION 25 MAY 2011
     Route: 042
     Dates: start: 20110330

REACTIONS (6)
  - DEPRESSION [None]
  - HYPERTENSION [None]
  - CONSTIPATION [None]
  - NAUSEA [None]
  - ANXIETY [None]
  - ANGINA PECTORIS [None]
